FAERS Safety Report 10045123 (Version 1)
Quarter: 2014Q1

REPORT INFORMATION
  Report Type: Spontaneous
  Country: GB (occurrence: GB)
  Receive Date: 20140328
  Receipt Date: 20140328
  Transmission Date: 20141002
  Serious: Yes (Life-Threatening, Other)
  Sender: FDA-Public Use
  Company Number: GB-ELI_LILLY_AND_COMPANY-GB201403009432

PATIENT
  Age: 60 Year
  Sex: Female

DRUGS (5)
  1. GEMCITABINE HYDROCHLORIDE [Suspect]
     Indication: MYCOSIS FUNGOIDES STAGE III
     Dosage: 1000 MG/M2, OTHER
  2. GRANULOCYTE COLONY-STIMULATING FACTOR NOS [Concomitant]
     Indication: PRODUCT USED FOR UNKNOWN INDICATION
     Route: 065
  3. ACICLOVIR [Concomitant]
     Indication: PROPHYLAXIS
     Route: 065
  4. CO-TRIMOXAZOLE [Concomitant]
     Indication: PROPHYLAXIS
     Route: 065
  5. FLUCONAZOLE [Concomitant]
     Indication: PROPHYLAXIS
     Route: 065

REACTIONS (8)
  - Vasculitis [Recovered/Resolved]
  - Thrombocytosis [Unknown]
  - Malaise [Unknown]
  - Decreased appetite [Unknown]
  - Back pain [Unknown]
  - C-reactive protein increased [Recovered/Resolved]
  - Anaemia [Unknown]
  - Off label use [Recovered/Resolved]
